FAERS Safety Report 13340788 (Version 1)
Quarter: 2017Q1

REPORT INFORMATION
  Report Type: Spontaneous
  Country: US (occurrence: US)
  Receive Date: 20170315
  Receipt Date: 20170315
  Transmission Date: 20170428
  Serious: Yes (Other)
  Sender: FDA-Public Use
  Company Number: None

PATIENT
  Age: 63 Year
  Sex: Female
  Weight: 55 kg

DRUGS (1)
  1. REMICADE [Suspect]
     Active Substance: INFLIXIMAB
     Indication: PSORIATIC ARTHROPATHY
     Dosage: 300 MG EVERY 6 WEEKS IV
     Route: 042
     Dates: start: 20170223, end: 20170310

REACTIONS (6)
  - Lacrimation increased [None]
  - Pruritus [None]
  - Refusal of treatment by patient [None]
  - Rash [None]
  - Rhinorrhoea [None]
  - Infusion related reaction [None]

NARRATIVE: CASE EVENT DATE: 20170310
